FAERS Safety Report 22300031 (Version 2)
Quarter: 2023Q2

REPORT INFORMATION
  Report Type: Report from Study
  Country: CN (occurrence: CN)
  Receive Date: 20230509
  Receipt Date: 20230522
  Transmission Date: 20230722
  Serious: Yes (Hospitalization)
  Sender: FDA-Public Use
  Company Number: CN-BRISTOL-MYERS SQUIBB COMPANY-2023-065891

PATIENT
  Age: 66 Year
  Sex: Male
  Weight: 55.9 kg

DRUGS (16)
  1. NIVOLUMAB [Suspect]
     Active Substance: NIVOLUMAB
     Indication: Adenocarcinoma gastric
     Dosage: STRENGTH: 100 MG/ML
     Route: 041
     Dates: start: 20230406, end: 20230406
  2. TST-001 [Suspect]
     Active Substance: TST-001
     Indication: Adenocarcinoma gastric
     Dosage: 3 MG/KG (168 MG), Q3W,STRENGTH: 225 MG/7.5 ML
     Route: 041
     Dates: start: 20230406, end: 20230406
  3. TST-001 [Suspect]
     Active Substance: TST-001
     Dosage: 3 MG/KG (168 MG), Q3W,STRENGTH: 225 MG
     Route: 041
     Dates: start: 20230427
  4. OXALIPLATIN [Suspect]
     Active Substance: OXALIPLATIN
     Indication: Adenocarcinoma gastric
     Dosage: STRENGTH: 50 MG/VIAL
     Route: 041
     Dates: start: 20230406, end: 20230406
  5. OXALIPLATIN [Suspect]
     Active Substance: OXALIPLATIN
     Route: 041
     Dates: start: 20230427
  6. CAPECITABINE [Suspect]
     Active Substance: CAPECITABINE
     Indication: Adenocarcinoma gastric
     Dosage: 1.5 G, PO, BID, DAY 1-14; STRENGTH: 0.5 G/TABLET
     Route: 048
     Dates: start: 20230406, end: 20230408
  7. ALUMINUM PHOSPHATE [Concomitant]
     Active Substance: ALUMINUM PHOSPHATE
     Indication: Gastritis prophylaxis
     Route: 048
     Dates: start: 20230404
  8. RABEPRAZOLE SODIUM [Concomitant]
     Active Substance: RABEPRAZOLE SODIUM
     Indication: Gastritis prophylaxis
     Route: 041
     Dates: start: 20230406, end: 20230406
  9. PALONOSETRON HYDROCHLORIDE [Concomitant]
     Active Substance: PALONOSETRON HYDROCHLORIDE
     Indication: Antiemetic supportive care
     Dosage: ONCE
     Route: 041
     Dates: start: 20230406, end: 20230406
  10. NETUPITANT\PALONOSETRON HYDROCHLORIDE [Concomitant]
     Active Substance: NETUPITANT\PALONOSETRON HYDROCHLORIDE
     Indication: Antiemetic supportive care
     Dosage: ONCE
     Route: 048
     Dates: start: 20230406, end: 20230406
  11. DEXAMETHASONE SODIUM PHOSPHATE [Concomitant]
     Active Substance: DEXAMETHASONE SODIUM PHOSPHATE
     Indication: Antiallergic therapy
     Route: 042
     Dates: start: 20230406, end: 20230406
  12. DEXAMETHASONE SODIUM PHOSPHATE [Concomitant]
     Active Substance: DEXAMETHASONE SODIUM PHOSPHATE
     Indication: Vomiting
  13. METOCLOPRAMIDE HYDROCHLORIDE [Concomitant]
     Active Substance: METOCLOPRAMIDE HYDROCHLORIDE
     Indication: Prophylaxis of nausea and vomiting
     Dosage: ONCE
     Route: 030
     Dates: start: 20230406, end: 20230427
  14. METOCLOPRAMIDE HYDROCHLORIDE [Concomitant]
     Active Substance: METOCLOPRAMIDE HYDROCHLORIDE
     Indication: Vomiting
  15. METOCLOPRAMIDE HYDROCHLORIDE [Concomitant]
     Active Substance: METOCLOPRAMIDE HYDROCHLORIDE
     Indication: Prophylaxis of nausea and vomiting
  16. LIDOCAINE HYDROCHLORIDE [Concomitant]
     Active Substance: LIDOCAINE HYDROCHLORIDE
     Indication: Local anaesthesia
     Dosage: ONCE
     Dates: start: 20230406, end: 20230406

REACTIONS (1)
  - Vomiting [Recovered/Resolved]

NARRATIVE: CASE EVENT DATE: 20230429
